FAERS Safety Report 5899122-8 (Version None)
Quarter: 2008Q3

REPORT INFORMATION
  Report Type: 
  Country: None (occurrence: None)
  Receive Date: 20080925
  Receipt Date: 20080917
  Transmission Date: 20090109
  Serious: Yes (Other)
  Sender: FDA-Public Use
  Company Number: JP-GENENTECH-268106

PATIENT
  Age: 27 Year
  Sex: Female

DRUGS (1)
  1. AVASTIN [Suspect]
     Indication: CHOROIDAL NEOVASCULARISATION
     Route: 031

REACTIONS (1)
  - OLIGOMENORRHOEA [None]
